FAERS Safety Report 11145191 (Version 5)
Quarter: 2016Q2

REPORT INFORMATION
  Report Type: Report from Study
  Country: TW (occurrence: TW)
  Receive Date: 20150528
  Receipt Date: 20160627
  Transmission Date: 20160815
  Serious: No
  Sender: FDA-Public Use
  Company Number: PHHY2014TW168828

PATIENT
  Age: 40 Year
  Sex: Male

DRUGS (8)
  1. DASATINIB [Concomitant]
     Active Substance: DASATINIB
     Indication: PROPHYLAXIS
     Dosage: 50 MG, UNK
     Route: 048
     Dates: start: 20140523
  2. FENOLIP [Concomitant]
     Indication: HYPERLIPIDAEMIA
  3. LANSOPRAZOLE. [Concomitant]
     Active Substance: LANSOPRAZOLE
     Indication: PRODUCT USED FOR UNKNOWN INDICATION
     Dosage: 30 MG, UNK
     Route: 048
     Dates: start: 20131226, end: 20140319
  4. DASATINIB [Concomitant]
     Active Substance: DASATINIB
     Indication: CHRONIC MYELOID LEUKAEMIA
  5. LORAZEPAM. [Concomitant]
     Active Substance: LORAZEPAM
     Indication: PRODUCT USED FOR UNKNOWN INDICATION
     Dosage: 0.5 MG, UNK
     Route: 048
     Dates: start: 20140123, end: 20140511
  6. TASIGNA [Suspect]
     Active Substance: NILOTINIB
     Indication: CHRONIC MYELOID LEUKAEMIA
     Dosage: 600 OT, UNK
     Route: 048
     Dates: start: 20130927
  7. FENOLIP [Concomitant]
     Indication: PROPHYLAXIS
     Dosage: 200 MG, UNK
     Route: 048
     Dates: start: 20140501, end: 20140514
  8. AMOXYCILLIN [Concomitant]
     Active Substance: AMOXICILLIN
     Indication: PRODUCT USED FOR UNKNOWN INDICATION
     Dosage: 250 MG, UNK
     Route: 048
     Dates: start: 20140512, end: 20140518

REACTIONS (6)
  - Cough [Recovered/Resolved]
  - Rhinorrhoea [Recovered/Resolved]
  - Rhinorrhoea [Recovered/Resolved]
  - Rhinorrhoea [Recovered/Resolved]
  - Cough [Recovered/Resolved]
  - Cough [Recovered/Resolved]

NARRATIVE: CASE EVENT DATE: 20131023
